FAERS Safety Report 14035298 (Version 2)
Quarter: 2017Q4

REPORT INFORMATION
  Report Type: Spontaneous
  Country: US (occurrence: US)
  Receive Date: 20171003
  Receipt Date: 20171229
  Transmission Date: 20180321
  Serious: Yes (Other)
  Sender: FDA-Public Use
  Company Number: US-PFIZER INC-2017425983

PATIENT
  Age: 46 Year
  Sex: Male
  Weight: 115.67 kg

DRUGS (1)
  1. XELJANZ [Suspect]
     Active Substance: TOFACITINIB CITRATE
     Indication: RENAL TRANSPLANT
     Dosage: 5MG, TWICE DAILY
     Route: 048
     Dates: start: 20051010

REACTIONS (2)
  - Thrombosis [Not Recovered/Not Resolved]
  - Product use in unapproved indication [Unknown]

NARRATIVE: CASE EVENT DATE: 20051010
